FAERS Safety Report 6329392-3 (Version None)
Quarter: 2009Q3

REPORT INFORMATION
  Report Type: 
  Country: None (occurrence: None)
  Receive Date: 20090826
  Receipt Date: 20090817
  Transmission Date: 20100115
  Serious: Yes (Death, Hospitalization)
  Sender: FDA-Public Use
  Company Number: A0783860A

PATIENT
  Sex: Male

DRUGS (11)
  1. ADVAIR HFA [Suspect]
     Indication: DRUG USE FOR UNKNOWN INDICATION
     Route: 055
  2. SEREVENT [Suspect]
     Indication: DRUG USE FOR UNKNOWN INDICATION
     Route: 055
  3. AZMACORT [Concomitant]
  4. VENTOLIN [Concomitant]
     Route: 055
  5. VANCERIL [Concomitant]
  6. PRIMATENE MIST [Concomitant]
  7. THEO-DUR [Concomitant]
  8. PREDNISONE [Concomitant]
  9. ANTIBIOTIC [Concomitant]
  10. SINGULAIR [Concomitant]
  11. FLOVENT [Concomitant]

REACTIONS (6)
  - ARTERIOSCLEROSIS [None]
  - ASTHMA [None]
  - BRONCHITIS [None]
  - BRONCHOSPASM [None]
  - HYPERTENSION [None]
  - RHINITIS [None]
